FAERS Safety Report 14778404 (Version 1)
Quarter: 2018Q2

REPORT INFORMATION
  Report Type: Spontaneous
  Country: DE (occurrence: DE)
  Receive Date: 20180419
  Receipt Date: 20180419
  Transmission Date: 20180711
  Serious: Yes (Hospitalization)
  Sender: FDA-Public Use
  Company Number: DE-ELI_LILLY_AND_COMPANY-DE201804007746

PATIENT
  Age: 84 Year
  Sex: Female

DRUGS (15)
  1. INSULIN HUMAN [Suspect]
     Active Substance: INSULIN HUMAN
     Indication: PRODUCT USED FOR UNKNOWN INDICATION
     Dosage: UNK UNK, UNKNOWN
     Route: 065
  2. METAMIZOL                          /06276702/ [Concomitant]
     Active Substance: METAMIZOLE
     Dosage: 500 MG, TID
     Route: 065
  3. INSULIN HUMAN [Suspect]
     Active Substance: INSULIN HUMAN
     Indication: PRODUCT USED FOR UNKNOWN INDICATION
     Dosage: UNK UNK, UNKNOWN
     Route: 065
  4. LISINOPRIL AND HYDROCHLOROTHIAZIDE [Concomitant]
     Active Substance: HYDROCHLOROTHIAZIDE\LISINOPRIL
     Dosage: 1 DF, DAILY
     Route: 065
  5. SPIRIVA [Concomitant]
     Active Substance: TIOTROPIUM BROMIDE MONOHYDRATE
     Dosage: 18 UG, DAILY
  6. LYRICA [Concomitant]
     Active Substance: PREGABALIN
     Dosage: 75 MG, DAILY
     Route: 065
  7. PHENPROCOUMON [Concomitant]
     Active Substance: PHENPROCOUMON
     Dosage: 3 MG, UNKNOWN
     Route: 065
  8. XIPAMID [Concomitant]
     Active Substance: XIPAMIDE
     Dosage: 10 MG, BID
     Route: 065
  9. FORMOTEROL [Concomitant]
     Active Substance: FORMOTEROL
     Dosage: UNK, DAILY
     Route: 065
  10. FUROSEMID                          /00032601/ [Concomitant]
     Active Substance: FUROSEMIDE
     Dosage: 40 MG, DAILY
     Route: 065
  11. PREDNISOLON                        /00016201/ [Suspect]
     Active Substance: PREDNISOLONE
     Indication: PRODUCT USED FOR UNKNOWN INDICATION
     Dosage: 4 MG, DAILY
     Route: 065
  12. OMEPRAZOL                          /00661201/ [Concomitant]
     Active Substance: OMEPRAZOLE
     Dosage: 40 MG, DAILY
     Route: 065
  13. EBRANTIL                           /00631801/ [Concomitant]
     Active Substance: URAPIDIL
     Dosage: 60 MG, DAILY
     Route: 065
  14. ENOXAPARIN [Concomitant]
     Active Substance: ENOXAPARIN
     Dosage: 40 MG, BID
  15. TRAMADOL. [Concomitant]
     Active Substance: TRAMADOL
     Dosage: UNK, UNKNOWN
     Route: 065

REACTIONS (2)
  - Somnolence [Unknown]
  - Hypoglycaemia [Unknown]
